FAERS Safety Report 8745757 (Version 3)
Quarter: 2013Q1

REPORT INFORMATION
  Report Type: Spontaneous
  Country: US (occurrence: US)
  Receive Date: 20120827
  Receipt Date: 20130111
  Transmission Date: 20140127
  Serious: No
  Sender: FDA-Public Use
  Company Number: US-009507513-1208USA001167

PATIENT
  Age: 52 Year
  Sex: Male
  Weight: 99.77 kg

DRUGS (1)
  1. INVANZ [Suspect]
     Indication: INFECTION
     Dosage: 1 G, QD
     Route: 042
     Dates: start: 20120801, end: 20120814

REACTIONS (3)
  - Incorrect storage of drug [Unknown]
  - Inappropriate schedule of drug administration [Unknown]
  - No adverse event [Unknown]
